FAERS Safety Report 5222403-8 (Version None)
Quarter: 2007Q1

REPORT INFORMATION
  Report Type: 
  Country: None (occurrence: None)
  Receive Date: 20070129
  Receipt Date: 20060510
  Transmission Date: 20070707
  Serious: No
  Sender: FDA-Public Use
  Company Number: US-BRISTOL-MYERS SQUIBB COMPANY-13373584

PATIENT
  Age: 57 Year
  Sex: Female
  Weight: 86 kg

DRUGS (3)
  1. TRAZODONE HCL [Suspect]
     Indication: DEPRESSION
     Dosage: 1 DOSAGE FORM = 100 TO 300 MG DAILY
     Dates: start: 20060201
  2. SYNTHROID [Concomitant]
  3. CRESTOR [Concomitant]

REACTIONS (1)
  - PALPITATIONS [None]
